FAERS Safety Report 8824983 (Version 1)
Quarter: 2012Q4

REPORT INFORMATION
  Report Type: 
  Country: US (occurrence: US)
  Receive Date: 20121004
  Receipt Date: 20121004
  Transmission Date: 20130627
  Serious: No
  Sender: FDA-Public Use
  Company Number: US-PFIZER INC-2012244489

PATIENT
  Age: 48 Year
  Sex: Male
  Weight: 72.56 kg

DRUGS (3)
  1. GABAPENTIN [Suspect]
     Indication: SPINAL PAIN
     Dosage: 2100mg in morning and 1800mg at night.
     Route: 048
     Dates: start: 201205, end: 2012
  2. LISINOPRIL [Concomitant]
     Indication: HYPERTENSION
     Dosage: UNK
  3. CORTISONE [Concomitant]
     Indication: SPINAL CORD INJURY
     Dosage: UNK
     Route: 008

REACTIONS (5)
  - Drug ineffective [Unknown]
  - Pain in extremity [Unknown]
  - Local swelling [Unknown]
  - Skin haemorrhage [Unknown]
  - Incorrect dose administered [Unknown]
